FAERS Safety Report 13185263 (Version 3)
Quarter: 2019Q2

REPORT INFORMATION
  Report Type: Report from Study
  Country: DE (occurrence: DE)
  Receive Date: 20170203
  Receipt Date: 20190520
  Transmission Date: 20190711
  Serious: Yes (Hospitalization)
  Sender: FDA-Public Use
  Company Number: DE-SA-2017SA014875

PATIENT
  Age: 27 Year
  Sex: Female
  Weight: 59 kg

DRUGS (7)
  1. FERROUS GLYCINE SULFATE [Concomitant]
     Active Substance: FERROUS GLYCINE SULFATE
     Indication: IRON DEFICIENCY
     Dosage: UNK, UNK
     Route: 048
     Dates: start: 20161213, end: 20170424
  2. ALEMTUZUMAB [Suspect]
     Active Substance: ALEMTUZUMAB
     Dosage: 12 MG
     Route: 041
     Dates: start: 20151012
  3. ARISTO [Concomitant]
     Indication: CONTRACEPTION
     Dosage: 75 UG,UNK
     Route: 048
     Dates: start: 20090101, end: 20190128
  4. PROTHYRID [Concomitant]
     Active Substance: LEVOTHYROXINE SODIUM
     Indication: THYROID DISORDER
     Dosage: 100 UG,UNK
     Route: 048
     Dates: start: 20161001
  5. ALEMTUZUMAB [Suspect]
     Active Substance: ALEMTUZUMAB
     Indication: MULTIPLE SCLEROSIS
     Dosage: UNK UNK,UNK
     Route: 041
     Dates: start: 20161006
  6. L-THYROX [Concomitant]
     Active Substance: LEVOTHYROXINE SODIUM
     Indication: THYROID DISORDER
     Dosage: DOSE: 50 (UNITS NOT REPORTED)
     Route: 048
     Dates: start: 20160830, end: 20160930
  7. VITAMIN D NOS [Concomitant]
     Active Substance: VITAMIN D NOS
     Indication: VITAMIN D DEFICIENCY
     Dosage: UNK UNK, UNK
     Route: 048
     Dates: start: 20170301

REACTIONS (3)
  - Cervical dysplasia [Not Recovered/Not Resolved]
  - Anti-neutrophil cytoplasmic antibody positive vasculitis [Recovering/Resolving]
  - Deafness unilateral [Recovered/Resolved]

NARRATIVE: CASE EVENT DATE: 20161021
